FAERS Safety Report 4811950-6 (Version None)
Quarter: 2005Q4

REPORT INFORMATION
  Report Type: 
  Country: None (occurrence: None)
  Receive Date: 20051026
  Receipt Date: 20051013
  Transmission Date: 20060501
  Serious: Yes (Other)
  Sender: FDA-Public Use
  Company Number: 2005142587

PATIENT
  Age: 75 Year
  Sex: Male

DRUGS (1)
  1. ZYVOX [Suspect]
     Dosage: 1200 MG (600 MG BID INTERVAL: EVERY DAY)
     Dates: start: 20050916, end: 20050922

REACTIONS (1)
  - NEPHRITIS INTERSTITIAL [None]
